FAERS Safety Report 22328418 (Version 1)
Quarter: 2023Q2

REPORT INFORMATION
  Report Type: Spontaneous
  Country: US (occurrence: US)
  Receive Date: 20230517
  Receipt Date: 20230517
  Transmission Date: 20230722
  Serious: No
  Sender: FDA-Public Use
  Company Number: US-BAUSCHBL-2023BNL004073

PATIENT
  Age: 87 Year
  Sex: Male

DRUGS (3)
  1. LUMIFY [Suspect]
     Active Substance: BRIMONIDINE TARTRATE
     Indication: Dry eye
     Dosage: GTT SINGLE
     Route: 047
     Dates: start: 20230511
  2. LUMIFY [Suspect]
     Active Substance: BRIMONIDINE TARTRATE
  3. BIOTRUE HYDRATION BOOST [Concomitant]
     Active Substance: GLYCERIN
     Indication: Product used for unknown indication

REACTIONS (2)
  - Instillation site pain [Recovered/Resolved]
  - Eye pain [Recovered/Resolved]

NARRATIVE: CASE EVENT DATE: 20230511
